FAERS Safety Report 10360089 (Version 1)
Quarter: 2014Q3

REPORT INFORMATION
  Report Type: Spontaneous
  Country: US (occurrence: None)
  Receive Date: 20140801
  Receipt Date: 20140801
  Transmission Date: 20150326
  Serious: Yes (Hospitalization)
  Sender: FDA-Public Use
  Company Number: None

PATIENT
  Age: 56 Year
  Sex: Female

DRUGS (7)
  1. ALBUTEROL INHALER [Concomitant]
     Active Substance: ALBUTEROL
  2. ARIPIPRAZOLE [Concomitant]
     Active Substance: ARIPIPRAZOLE
  3. LURASIDONE [Suspect]
     Active Substance: LURASIDONE
     Indication: SCHIZOPHRENIA, PARANOID TYPE
     Dosage: 1, QD, ORAL
     Route: 048
     Dates: start: 20140220, end: 20140319
  4. LITHIUM [Concomitant]
     Active Substance: LITHIUM CARBONATE
  5. MOMETASONE-FORMOTEROL [Concomitant]
  6. STRIBILD [Suspect]
     Active Substance: COBICISTAT\ELVITEGRAVIR\EMTRICITABINE\TENOFOVIR DISOPROXIL FUMARATE
     Indication: HIV INFECTION
     Dosage: 1 TABLET, QD, ORAL
     Route: 048
     Dates: start: 20130225
  7. VALACYCLOVIR [Concomitant]
     Active Substance: VALACYCLOVIR HYDROCHLORIDE

REACTIONS (17)
  - Headache [None]
  - Phonophobia [None]
  - Cerebral calcification [None]
  - Radiculopathy [None]
  - Nausea [None]
  - Toxicity to various agents [None]
  - Hypoaesthesia [None]
  - Cerebral small vessel ischaemic disease [None]
  - Muscular weakness [None]
  - Neck pain [None]
  - Cervical spinal stenosis [None]
  - Blindness [None]
  - Vomiting [None]
  - Pain [None]
  - Photophobia [None]
  - Drug interaction [None]
  - Back pain [None]

NARRATIVE: CASE EVENT DATE: 20140319
